FAERS Safety Report 13934672 (Version 2)
Quarter: 2017Q3

REPORT INFORMATION
  Report Type: Spontaneous
  Country: DE (occurrence: DE)
  Receive Date: 20170905
  Receipt Date: 20170923
  Transmission Date: 20171127
  Serious: Yes (Hospitalization)
  Sender: FDA-Public Use
  Company Number: DE-B.I. PHARMACEUTICALS,INC./RIDGEFIELD-2017-BI-048725

PATIENT
  Sex: Female
  Weight: 53 kg

DRUGS (3)
  1. CLODRONIC ACID [Concomitant]
     Active Substance: CLODRONIC ACID
     Indication: NON-SMALL CELL LUNG CANCER
     Dosage: DOSE OF CLODRONIC ACID: 1500 PER MONTH
     Route: 042
     Dates: start: 20170328
  2. GILOTRIF [Suspect]
     Active Substance: AFATINIB
     Route: 048
     Dates: start: 20170418, end: 20170424
  3. GILOTRIF [Suspect]
     Active Substance: AFATINIB
     Indication: NON-SMALL CELL LUNG CANCER
     Route: 048
     Dates: start: 20170223, end: 20170410

REACTIONS (1)
  - Gastrointestinal disorder [Unknown]
